FAERS Safety Report 18851062 (Version 1)
Quarter: 2021Q1

REPORT INFORMATION
  Report Type: Spontaneous
  Country: US (occurrence: US)
  Receive Date: 20210205
  Receipt Date: 20210205
  Transmission Date: 20210420
  Serious: No
  Sender: FDA-Public Use
  Company Number: US-SA-2021SA034253

PATIENT

DRUGS (2)
  1. EUCRISA [Concomitant]
     Active Substance: CRISABOROLE
     Indication: ECZEMA
  2. DUPIXENT [Suspect]
     Active Substance: DUPILUMAB
     Dosage: N/A

REACTIONS (1)
  - Dermatitis [Unknown]
